FAERS Safety Report 6151572-0 (Version None)
Quarter: 2009Q2

REPORT INFORMATION
  Report Type: 
  Country: None (occurrence: None)
  Receive Date: 20090410
  Receipt Date: 20090330
  Transmission Date: 20091009
  Serious: Yes (Hospitalization)
  Sender: FDA-Public Use
  Company Number: JP-ROCHE-626027

PATIENT
  Age: 45 Year
  Sex: Female

DRUGS (1)
  1. DIAZEPAM [Suspect]
     Indication: PREMEDICATION
     Dosage: PREMEDICATION FOR ENDOSCOPY
     Route: 042
     Dates: start: 20090317, end: 20090317

REACTIONS (1)
  - VASCULITIS [None]
